FAERS Safety Report 8776230 (Version 1)
Quarter: 2012Q4

REPORT INFORMATION
  Report Type: 
  Country: US (occurrence: US)
  Receive Date: 20120910
  Receipt Date: 20120910
  Transmission Date: 20130627
  Serious: No
  Sender: FDA-Public Use
  Company Number: US-PFIZER INC-2012221517

PATIENT
  Age: 55 Year
  Sex: Female
  Weight: 43.99 kg

DRUGS (13)
  1. LYRICA [Suspect]
     Indication: BURNING SENSATION
     Dosage: 75 mg, 2x/day
     Route: 048
     Dates: start: 2010
  2. LYRICA [Suspect]
     Indication: HYPOAESTHESIA
     Dosage: 100 mg, 3x/day
     Route: 048
     Dates: end: 201206
  3. GABAPENTIN [Suspect]
     Indication: PAIN IN EXTREMITY
     Dosage: 300 mg, 3x/day
  4. GABAPENTIN [Suspect]
     Indication: ARTHRALGIA
  5. VICODIN [Suspect]
     Indication: PAIN IN EXTREMITY
     Dosage: UNK
  6. VICODIN [Suspect]
     Indication: ARTHRALGIA
  7. CELEXA [Suspect]
     Indication: PAIN IN EXTREMITY
     Dosage: UNK
  8. CELEXA [Suspect]
     Indication: ARTHRALGIA
  9. FLEXERIL [Suspect]
     Indication: MUSCLE RELAXANT THERAPY
     Dosage: UNK
  10. SPIRIVA [Concomitant]
     Indication: ASTHMA
     Dosage: UNK
  11. ADVAIR DISKUS [Concomitant]
     Indication: ASTHMA
     Dosage: 500/50 ug, 2x/day
  12. COMBIVENT [Concomitant]
     Indication: CHRONIC OBSTRUCTIVE PULMONARY DISEASE
     Dosage: two puffs, as needed
  13. BENTYL [Concomitant]
     Indication: IRRITABLE BOWEL SYNDROME
     Dosage: 20 mg, 3x/day

REACTIONS (3)
  - Arthralgia [Unknown]
  - Pain in extremity [Unknown]
  - Drug ineffective [Unknown]
